FAERS Safety Report 9550626 (Version 1)
Quarter: 2013Q3

REPORT INFORMATION
  Report Type: Spontaneous
  Country: US (occurrence: US)
  Receive Date: 20130924
  Receipt Date: 20130924
  Transmission Date: 20140515
  Serious: No
  Sender: FDA-Public Use
  Company Number: US-SANOFI-AVENTIS-2013SA007741

PATIENT
  Age: 38 Year
  Sex: Male

DRUGS (2)
  1. AUBAGIO [Suspect]
     Indication: MULTIPLE SCLEROSIS
     Route: 048
     Dates: start: 20121221
  2. AUBAGIO [Suspect]
     Indication: MULTIPLE SCLEROSIS
     Route: 048
     Dates: start: 20121223, end: 20130701

REACTIONS (12)
  - Weight increased [Not Recovered/Not Resolved]
  - Fluid retention [Not Recovered/Not Resolved]
  - Hyperhidrosis [Not Recovered/Not Resolved]
  - Fatigue [Not Recovered/Not Resolved]
  - Sleep disorder [Not Recovered/Not Resolved]
  - Drug dose omission [Unknown]
  - Hot flush [Not Recovered/Not Resolved]
  - Pain in extremity [Unknown]
  - Bedridden [Not Recovered/Not Resolved]
  - Skin disorder [Not Recovered/Not Resolved]
  - Mental disorder [Unknown]
  - Hypoaesthesia [Unknown]
